FAERS Safety Report 6660746-1 (Version None)
Quarter: 2010Q1

REPORT INFORMATION
  Report Type: 
  Country: None (occurrence: None)
  Receive Date: 20100331
  Receipt Date: 20100325
  Transmission Date: 20100710
  Serious: Yes (Hospitalization)
  Sender: FDA-Public Use
  Company Number: JP-BAYER-201011056BYL

PATIENT
  Age: 66 Year
  Sex: Female
  Weight: 50 kg

DRUGS (5)
  1. NEXAVAR [Suspect]
     Indication: HEPATIC NEOPLASM MALIGNANT
     Dosage: TOTAL DAILY DOSE: 800 MG  UNIT DOSE: 200 MG
     Route: 048
     Dates: start: 20100223, end: 20100307
  2. DIOVAN [Concomitant]
     Dosage: UNIT DOSE: 80 MG
     Route: 048
  3. THYRADIN S [Concomitant]
     Dosage: UNIT DOSE: 50 ?G
     Route: 048
  4. AMLODIN OD [Concomitant]
     Dosage: UNIT DOSE: 2.5 MG
     Route: 048
  5. URSO 250 [Concomitant]
     Dosage: UNIT DOSE: 100 MG
     Route: 048

REACTIONS (2)
  - HENOCH-SCHONLEIN PURPURA [None]
  - PALMAR-PLANTAR ERYTHRODYSAESTHESIA SYNDROME [None]
